FAERS Safety Report 6271250-7 (Version None)
Quarter: 2009Q3

REPORT INFORMATION
  Report Type: 
  Country: None (occurrence: None)
  Receive Date: 20090716
  Receipt Date: 20090716
  Transmission Date: 20100115
  Serious: Yes (Other)
  Sender: FDA-Public Use
  Company Number: None

PATIENT
  Age: 54 Year
  Sex: Female
  Weight: 63.5036 kg

DRUGS (4)
  1. RYZOLT [Suspect]
     Indication: PAIN
     Dosage: 1 TABLET IN AM PO
     Route: 048
     Dates: start: 20090704, end: 20090710
  2. RYZOLT [Suspect]
     Indication: POST HERPETIC NEURALGIA
     Dosage: 1 TABLET IN AM PO
     Route: 048
     Dates: start: 20090704, end: 20090710
  3. ULTRAM ER [Concomitant]
  4. PREDNISONE TAB [Concomitant]

REACTIONS (1)
  - DRUG HYPERSENSITIVITY [None]
